FAERS Safety Report 12784731 (Version 1)
Quarter: 2016Q3

REPORT INFORMATION
  Report Type: Spontaneous
  Country: US (occurrence: US)
  Receive Date: 20160927
  Receipt Date: 20160927
  Transmission Date: 20161109
  Serious: Yes (Other)
  Sender: FDA-Public Use
  Company Number: US-BAYER-2016-184434

PATIENT
  Sex: Female
  Weight: 54.42 kg

DRUGS (5)
  1. CELEBREX [Concomitant]
     Active Substance: CELECOXIB
     Indication: ANTIINFLAMMATORY THERAPY
     Dosage: 200 MG, QD
     Route: 048
     Dates: start: 2013
  2. IBUPROFEN. [Interacting]
     Active Substance: IBUPROFEN
     Indication: TENDONITIS
     Dosage: UNK
  3. CELEBREX [Concomitant]
     Active Substance: CELECOXIB
     Indication: ARTHRITIS
  4. IBUPROFEN. [Interacting]
     Active Substance: IBUPROFEN
     Indication: TENDONITIS
     Dosage: 800 MG, UNK
     Route: 065
     Dates: start: 1985, end: 200210
  5. ALEVE [Suspect]
     Active Substance: NAPROXEN SODIUM
     Indication: TENDONITIS
     Dosage: 550 MG, BID
     Route: 048
     Dates: start: 1985, end: 200210

REACTIONS (5)
  - Product use issue [None]
  - Gastric ulcer, obstructive [Recovered/Resolved]
  - Drug administration error [Recovered/Resolved]
  - Gastric ulcer haemorrhage [Recovered/Resolved]
  - Labelled drug-drug interaction medication error [Recovered/Resolved]

NARRATIVE: CASE EVENT DATE: 1985
